FAERS Safety Report 7775431-2 (Version None)
Quarter: 2011Q3

REPORT INFORMATION
  Report Type: 
  Country: None (occurrence: None)
  Receive Date: 20110923
  Receipt Date: 20110920
  Transmission Date: 20111222
  Serious: Yes (Death, Hospitalization, Other)
  Sender: FDA-Public Use
  Company Number: PHEH2009US11424

PATIENT
  Sex: Male

DRUGS (9)
  1. DUONEB [Concomitant]
  2. PROTONIX [Concomitant]
     Dosage: 40 MG, QD
     Route: 048
  3. MONTELUKAST SODIUM [Concomitant]
     Dosage: 10 MG, QD
     Route: 048
  4. FUROSEMIDE [Concomitant]
     Dosage: 40 MG, QD
     Route: 048
  5. COREG [Concomitant]
     Dosage: 3.125 MG, UNK
  6. FORADIL                                 /USA/ [Concomitant]
     Dosage: 12 UG, PRN
  7. COMBIVENT [Concomitant]
  8. AREDIA [Suspect]
  9. PREDNISONE [Concomitant]
     Dosage: 10 MG, UNK

REACTIONS (37)
  - OVERDOSE [None]
  - INJURY [None]
  - CONJUNCTIVAL ABRASION [None]
  - CARDIOMEGALY [None]
  - PNEUMONIA [None]
  - CARDIAC FAILURE CONGESTIVE [None]
  - FATIGUE [None]
  - MALAISE [None]
  - DYSPNOEA [None]
  - HYPERCALCAEMIA [None]
  - OSTEOPOROSIS [None]
  - CHRONIC OBSTRUCTIVE PULMONARY DISEASE [None]
  - GENERAL PHYSICAL HEALTH DETERIORATION [None]
  - WEIGHT DECREASED [None]
  - ASTHENIA [None]
  - AORTIC VALVE INCOMPETENCE [None]
  - EMPHYSEMA [None]
  - DEFORMITY [None]
  - SPINAL OSTEOARTHRITIS [None]
  - RIB FRACTURE [None]
  - PLEURAL FIBROSIS [None]
  - MITRAL VALVE INCOMPETENCE [None]
  - PULMONARY HYPERTENSION [None]
  - OSTEONECROSIS OF JAW [None]
  - ANHEDONIA [None]
  - MULTIPLE MYELOMA [None]
  - RENAL FAILURE ACUTE [None]
  - ASTHMA [None]
  - CARDIOMYOPATHY [None]
  - DECREASED APPETITE [None]
  - PAIN [None]
  - INFECTION [None]
  - RENAL FAILURE CHRONIC [None]
  - HYPOPHAGIA [None]
  - PHYSICAL DISABILITY [None]
  - EMOTIONAL DISTRESS [None]
  - ANXIETY [None]
